FAERS Safety Report 4915275-X (Version None)
Quarter: 2006Q1

REPORT INFORMATION
  Report Type: 
  Country: None (occurrence: None)
  Receive Date: 20060216
  Receipt Date: 20060216
  Transmission Date: 20060701
  Serious: Yes (Hospitalization)
  Sender: FDA-Public Use
  Company Number: None

PATIENT
  Sex: Female

DRUGS (2)
  1. COPAXONE [Suspect]
     Indication: MULTIPLE SCLEROSIS
     Dosage: INJECTION, PRIOR TO ADMISSION
  2. FLEXERIL [Concomitant]

REACTIONS (3)
  - ABDOMINAL PAIN UPPER [None]
  - FLUSHING [None]
  - PRURITUS [None]
